FAERS Safety Report 8897998 (Version 1)
Quarter: 2012Q4

REPORT INFORMATION
  Report Type: 
  Country: US (occurrence: US)
  Receive Date: 20121108
  Receipt Date: 20121108
  Transmission Date: 20130627
  Serious: No
  Sender: FDA-Public Use
  Company Number: US-AMGEN-USASP2012030713

PATIENT
  Sex: Female

DRUGS (2)
  1. ENBREL [Suspect]
     Indication: PSORIASIS
     Dosage: 50 mg, 2 times/wk
     Dates: start: 20120103, end: 20120415
  2. TREXALL [Concomitant]
     Dosage: 1 mg, qwk
     Dates: start: 20120426

REACTIONS (1)
  - Drug ineffective [Not Recovered/Not Resolved]
